FAERS Safety Report 5510034-1 (Version None)
Quarter: 2007Q4

REPORT INFORMATION
  Report Type: 
  Country: None (occurrence: None)
  Receive Date: 20071108
  Receipt Date: 20070126
  Transmission Date: 20080405
  Serious: No
  Sender: FDA-Public Use
  Company Number: US-ABBOTT-07P-163-0358545-00

PATIENT

DRUGS (1)
  1. BIAXIN [Suspect]
     Indication: SINUSITIS
     Route: 048

REACTIONS (3)
  - DRUG INEFFECTIVE [None]
  - DYSGEUSIA [None]
  - PAROSMIA [None]
